FAERS Safety Report 7323702-6 (Version None)
Quarter: 2011Q1

REPORT INFORMATION
  Report Type: 
  Country: None (occurrence: None)
  Receive Date: 20110301
  Receipt Date: 20110225
  Transmission Date: 20110831
  Serious: Yes (Hospitalization)
  Sender: FDA-Public Use
  Company Number: US-ABBOTT-11P-163-0707090-00

PATIENT
  Sex: Female
  Weight: 73.548 kg

DRUGS (7)
  1. CELEXA [Concomitant]
     Indication: MOOD ALTERED
     Dosage: 1 IN 1 DAY, TAKEN IN THE AM
     Dates: start: 20101201, end: 20110101
  2. ASPIRIN [Concomitant]
     Indication: PRODUCT USED FOR UNKNOWN INDICATION
  3. FOLIC ACID [Concomitant]
     Indication: VITAMIN SUPPLEMENTATION
  4. HUMIRA [Suspect]
     Indication: RHEUMATOID ARTHRITIS
     Dates: start: 20010101
  5. CELEXA [Concomitant]
     Indication: DEPRESSION
     Dosage: 1 IN 1 DAY, TAKEN IN THE AM
     Dates: start: 20110101
  6. METHOTREXATE [Concomitant]
     Indication: RHEUMATOID ARTHRITIS
  7. AMBIEN [Concomitant]
     Indication: INSOMNIA

REACTIONS (15)
  - BRAIN SCAN ABNORMAL [None]
  - FALL [None]
  - HYPOAESTHESIA [None]
  - PERONEAL NERVE PALSY [None]
  - POOR QUALITY DRUG ADMINISTERED [None]
  - GAIT DISTURBANCE [None]
  - INCORRECT STORAGE OF DRUG [None]
  - BRAIN OEDEMA [None]
  - ARTHRALGIA [None]
  - BACK PAIN [None]
  - THINKING ABNORMAL [None]
  - SPEECH DISORDER [None]
  - BRADYPHRENIA [None]
  - SLOW RESPONSE TO STIMULI [None]
  - ASTHENIA [None]
